FAERS Safety Report 4666447-3 (Version None)
Quarter: 2005Q2

REPORT INFORMATION
  Report Type: 
  Country: None (occurrence: None)
  Receive Date: 20050518
  Receipt Date: 20050505
  Transmission Date: 20051028
  Serious: Yes (Hospitalization)
  Sender: FDA-Public Use
  Company Number: S05-USA-01759-01

PATIENT
  Age: 36 Year
  Sex: Female

DRUGS (2)
  1. LEXAPRO [Suspect]
     Indication: DEPRESSION
     Dosage: 40 MG QD PO
     Route: 048
     Dates: start: 20040401, end: 20050323
  2. WELLBUTRIN [Suspect]
     Indication: DEPRESSION
     Dosage: 150 MG QD
     Dates: start: 20040221

REACTIONS (6)
  - DIPLOPIA [None]
  - DRUG INTERACTION [None]
  - NAUSEA [None]
  - VERTIGO [None]
  - VIITH NERVE PARALYSIS [None]
  - VOMITING [None]
